FAERS Safety Report 4527448-9 (Version None)
Quarter: 2004Q4

REPORT INFORMATION
  Report Type: 
  Country: None (occurrence: None)
  Receive Date: 20041215
  Receipt Date: 20041208
  Transmission Date: 20050328
  Serious: Yes (Other)
  Sender: FDA-Public Use
  Company Number: 200419444US

PATIENT
  Age: 52 Year
  Sex: Female

DRUGS (3)
  1. LANTUS [Suspect]
     Indication: DIABETES MELLITUS INSULIN-DEPENDENT
     Dosage: DOSE: 20-22 ; DOSE UNIT: UNITS
     Dates: start: 20040916
  2. PREDNISONE [Concomitant]
     Dosage: DOSE: UNK
  3. IMURAN [Concomitant]
     Dosage: DOSE: UNK

REACTIONS (5)
  - ANXIETY [None]
  - ASTHENIA [None]
  - DEPRESSION [None]
  - DIZZINESS [None]
  - SYNCOPE [None]
